FAERS Safety Report 5768759-9 (Version None)
Quarter: 2008Q2

REPORT INFORMATION
  Report Type: 
  Country: None (occurrence: None)
  Receive Date: 20080610
  Receipt Date: 20080603
  Transmission Date: 20081010
  Serious: Yes (Life-Threatening)
  Sender: FDA-Public Use
  Company Number: 200806AGG00810

PATIENT
  Age: 71 Year
  Sex: Male

DRUGS (5)
  1. TIROFIBAN HYDROCHLORIDE (TIROFIBAN HACL) [Suspect]
     Indication: ACUTE MYOCARDIAL INFARCTION
     Dosage: INTRAVENOUS (NOT OTHERWISE SPCECIFIED)
     Dates: start: 20080602, end: 20080602
  2. ASPIRIN [Concomitant]
  3. CLOPIDOGREL BISULFATE [Concomitant]
  4. DOBUTAMINE HCL [Concomitant]
  5. HEPARIN [Concomitant]

REACTIONS (1)
  - PERICARDIAL EFFUSION [None]
